FAERS Safety Report 9808319 (Version 2)
Quarter: 2014Q1

REPORT INFORMATION
  Report Type: Spontaneous
  Country: US (occurrence: US)
  Receive Date: 20140110
  Receipt Date: 20140114
  Transmission Date: 20141002
  Serious: No
  Sender: FDA-Public Use
  Company Number: US-009507513-1401USA002059

PATIENT
  Age: 80 Year
  Sex: Female

DRUGS (1)
  1. TRUSOPT [Suspect]
     Indication: GLAUCOMA
     Dosage: 1 DROP EACH EYE TWICE A DAY
     Route: 031
     Dates: start: 2004, end: 20140105

REACTIONS (3)
  - Gait disturbance [Recovered/Resolved]
  - Dizziness [Recovered/Resolved]
  - Product tampering [Unknown]
